FAERS Safety Report 21193504 (Version 2)
Quarter: 2025Q2

REPORT INFORMATION
  Report Type: Report from Study
  Country: SE (occurrence: UG)
  Receive Date: 20220810
  Receipt Date: 20250519
  Transmission Date: 20250716
  Serious: Yes (Other)
  Sender: AUROBINDO
  Company Number: SE-009507513-2207UGA009422

PATIENT
  Age: 3 Year

DRUGS (1)
  1. EFAVIRENZ [Suspect]
     Active Substance: EFAVIRENZ
     Indication: HIV infection
     Route: 048

REACTIONS (1)
  - Pathogen resistance [Unknown]
